FAERS Safety Report 24869570 (Version 4)
Quarter: 2025Q3

REPORT INFORMATION
  Report Type: Spontaneous
  Country: JP (occurrence: JP)
  Receive Date: 20250121
  Receipt Date: 20250924
  Transmission Date: 20251021
  Serious: Yes (Hospitalization, Other)
  Sender: BRISTOL-MYERS SQUIBB COMPANY
  Company Number: JP-BRISTOL-MYERS SQUIBB COMPANY-2025-007987

PATIENT
  Age: 80 Year
  Sex: Female

DRUGS (8)
  1. REBLOZYL [Suspect]
     Active Substance: LUSPATERCEPT-AAMT
     Indication: Anaemia of malignant disease
  2. REBLOZYL [Suspect]
     Active Substance: LUSPATERCEPT-AAMT
  3. REBLOZYL [Suspect]
     Active Substance: LUSPATERCEPT-AAMT
  4. REBLOZYL [Suspect]
     Active Substance: LUSPATERCEPT-AAMT
  5. REBLOZYL [Suspect]
     Active Substance: LUSPATERCEPT-AAMT
  6. REBLOZYL [Suspect]
     Active Substance: LUSPATERCEPT-AAMT
  7. REBLOZYL [Suspect]
     Active Substance: LUSPATERCEPT-AAMT
  8. REBLOZYL [Suspect]
     Active Substance: LUSPATERCEPT-AAMT

REACTIONS (2)
  - Duodenal ulcer haemorrhage [Unknown]
  - Therapy non-responder [Unknown]
